FAERS Safety Report 6607068-2 (Version None)
Quarter: 2010Q1

REPORT INFORMATION
  Report Type: 
  Country: None (occurrence: None)
  Receive Date: 20100219
  Receipt Date: 20100209
  Transmission Date: 20100710
  Serious: Yes (Hospitalization)
  Sender: FDA-Public Use
  Company Number: 235525J09USA

PATIENT
  Age: 61 Year
  Sex: Male
  Weight: 82 kg

DRUGS (10)
  1. REBIF [Suspect]
     Indication: MULTIPLE SCLEROSIS
     Dosage: 44 MCG, 3 IN 1 WEEKS, SUBCUTANEOUS ; 44 MCG, 3 IN 1 WEEKS, SUBCUTANEOUS
     Route: 058
     Dates: start: 20090901, end: 20091201
  2. REBIF [Suspect]
     Indication: MULTIPLE SCLEROSIS
     Dosage: 44 MCG, 3 IN 1 WEEKS, SUBCUTANEOUS ; 44 MCG, 3 IN 1 WEEKS, SUBCUTANEOUS
     Route: 058
     Dates: start: 20100107
  3. ZETIA [Concomitant]
  4. ATENOLOL [Concomitant]
  5. COUMADIN [Concomitant]
  6. BACLOFEN [Concomitant]
  7. LUNESTA [Concomitant]
  8. ENALAPRIL MALEATE [Concomitant]
  9. LIPITOR [Concomitant]
  10. ROPINIROLE [Concomitant]

REACTIONS (6)
  - ABDOMINAL PAIN UPPER [None]
  - AORTIC ANEURYSM [None]
  - BACK PAIN [None]
  - CARDIAC FAILURE [None]
  - CHEST PAIN [None]
  - MUSCLE SPASMS [None]
